FAERS Safety Report 12877080 (Version 1)
Quarter: 2016Q4

REPORT INFORMATION
  Report Type: Spontaneous
  Country: US (occurrence: US)
  Receive Date: 20161022
  Receipt Date: 20161022
  Transmission Date: 20170207
  Serious: Yes (Hospitalization, Other)
  Sender: FDA-Public Use
  Company Number: None

PATIENT
  Age: 25 Year
  Sex: Female
  Weight: 58.5 kg

DRUGS (2)
  1. CLINDAMYCIN. [Suspect]
     Active Substance: CLINDAMYCIN
     Indication: MASTITIS
     Dosage: EVERY 6 HOURS
     Route: 048
     Dates: start: 20161002, end: 20161009
  2. PRENATAL VIT [Concomitant]

REACTIONS (3)
  - Diarrhoea [None]
  - Clostridium test positive [None]
  - Pyrexia [None]

NARRATIVE: CASE EVENT DATE: 20161014
